FAERS Safety Report 14554542 (Version 2)
Quarter: 2018Q1

REPORT INFORMATION
  Report Type: Spontaneous
  Country: IT (occurrence: IT)
  Receive Date: 20180220
  Receipt Date: 20180302
  Transmission Date: 20180509
  Serious: Yes (Other)
  Sender: FDA-Public Use
  Company Number: IT-EMD SERONO-E2B_90021729

PATIENT
  Age: 49 Year
  Sex: Male

DRUGS (1)
  1. REBIF [Suspect]
     Active Substance: INTERFERON BETA-1A
     Indication: PRODUCT USED FOR UNKNOWN INDICATION
     Route: 058
     Dates: start: 20170301

REACTIONS (2)
  - Leukopenia [Unknown]
  - Pain in extremity [Unknown]

NARRATIVE: CASE EVENT DATE: 20170401
